FAERS Safety Report 11718714 (Version 1)
Quarter: 2015Q4

REPORT INFORMATION
  Report Type: Spontaneous
  Country: US (occurrence: US)
  Receive Date: 20151110
  Receipt Date: 20151110
  Transmission Date: 20160304
  Serious: Yes (Other)
  Sender: FDA-Public Use
  Company Number: US-RECKITT BENCKISER HEALTHCARE INT LIMITED-RB-08831-2015

PATIENT
  Sex: Male

DRUGS (1)
  1. DELSYM [Suspect]
     Active Substance: DEXTROMETHORPHAN
     Indication: PRODUCT USED FOR UNKNOWN INDICATION
     Dosage: 35 ML, SINGLE
     Route: 065

REACTIONS (5)
  - Confusional state [Unknown]
  - Headache [Unknown]
  - Overdose [Unknown]
  - Dizziness [Unknown]
  - Vision blurred [Unknown]
